FAERS Safety Report 7667289-7 (Version None)
Quarter: 2011Q3

REPORT INFORMATION
  Report Type: 
  Country: None (occurrence: None)
  Receive Date: 20110806
  Receipt Date: 20110405
  Transmission Date: 20111222
  Serious: No
  Sender: FDA-Public Use
  Company Number: US-ABBOTT-11P-163-0717125-00

PATIENT
  Sex: Female
  Weight: 83.99 kg

DRUGS (5)
  1. EFFEXOR [Concomitant]
     Indication: DEPRESSION
  2. SECTRAL [Concomitant]
     Indication: HYPERTENSION
  3. NIASPAN [Suspect]
     Indication: HIGH DENSITY LIPOPROTEIN DECREASED
     Dates: start: 20110317, end: 20110405
  4. SIMVASTATIN [Concomitant]
     Indication: LOW DENSITY LIPOPROTEIN DECREASED
  5. DETROL LA [Concomitant]
     Indication: URINARY INCONTINENCE

REACTIONS (5)
  - ABDOMINAL DISTENSION [None]
  - DIARRHOEA [None]
  - NAUSEA [None]
  - GASTROOESOPHAGEAL REFLUX DISEASE [None]
  - ABDOMINAL PAIN [None]
